FAERS Safety Report 23145145 (Version 2)
Quarter: 2025Q4

REPORT INFORMATION
  Report Type: Report from Study
  Country: US (occurrence: US)
  Receive Date: 20231103
  Receipt Date: 20251221
  Transmission Date: 20260118
  Serious: Yes (Hospitalization)
  Sender: TAKEDA
  Company Number: US-TAKEDA-2021TUS032894

PATIENT
  Age: 77 Year
  Sex: Female

DRUGS (1)
  1. VEDOLIZUMAB [Suspect]
     Active Substance: VEDOLIZUMAB
     Indication: Colitis ulcerative
     Dosage: 300 MILLIGRAM, Q4WEEKS

REACTIONS (3)
  - Road traffic accident [Unknown]
  - Confusional state [Unknown]
  - Decreased activity [Unknown]

NARRATIVE: CASE EVENT DATE: 20231023
